FAERS Safety Report 16066182 (Version 1)
Quarter: 2019Q2

REPORT INFORMATION
  Report Type: Spontaneous
  Country: US (occurrence: US)
  Receive Date: 20190312
  Receipt Date: 20190312
  Transmission Date: 20190711
  Serious: No
  Sender: FDA-Public Use
  Company Number: None

PATIENT
  Age: 4 Year
  Sex: Female
  Weight: 15.3 kg

DRUGS (1)
  1. ALBUTEROL SULFATE INHALATION SOLUTION 0.083% (2.5MG/3ML) [Suspect]
     Active Substance: ALBUTEROL SULFATE
     Indication: BRONCHITIS
     Dosage: ?          QUANTITY:1 VIAL;?
     Route: 055
     Dates: start: 20190214, end: 20190302

REACTIONS (1)
  - Tooth discolouration [None]

NARRATIVE: CASE EVENT DATE: 20190218
